FAERS Safety Report 7884673-7 (Version None)
Quarter: 2011Q4

REPORT INFORMATION
  Report Type: 
  Country: None (occurrence: None)
  Receive Date: 20111102
  Receipt Date: 20111029
  Transmission Date: 20120403
  Serious: No
  Sender: FDA-Public Use
  Company Number: US-TEVA-307322USA

PATIENT
  Sex: Female
  Weight: 45.4 kg

DRUGS (2)
  1. PLAN B ONE-STEP [Suspect]
     Indication: POST COITAL CONTRACEPTION
     Dosage: 1.5 MILLIGRAM;
     Route: 048
     Dates: start: 20111026, end: 20111026
  2. IRON PILLS [Concomitant]
     Indication: RED BLOOD CELL COUNT DECREASED

REACTIONS (6)
  - HEADACHE [None]
  - ASTHENIA [None]
  - MENSTRUATION IRREGULAR [None]
  - VAGINAL DISCHARGE [None]
  - DIZZINESS [None]
  - MIGRAINE [None]
